FAERS Safety Report 6056499-0 (Version None)
Quarter: 2009Q1

REPORT INFORMATION
  Report Type: 
  Country: None (occurrence: None)
  Receive Date: 20090129
  Receipt Date: 20090126
  Transmission Date: 20090719
  Serious: Yes (Death, Other)
  Sender: FDA-Public Use
  Company Number: PHHY2009GB00814

PATIENT
  Sex: Male
  Weight: 101 kg

DRUGS (2)
  1. CLOZARIL [Suspect]
     Indication: SCHIZOPHRENIA
     Dosage: 450 MG, UNK
     Route: 048
     Dates: start: 20040331
  2. VALPROATE SODIUM [Concomitant]
     Indication: MOOD ALTERED
     Dosage: 750 MG, BID
     Route: 048
     Dates: start: 20040701

REACTIONS (13)
  - ARTERIOSCLEROSIS [None]
  - ARTERIOSCLEROSIS CORONARY ARTERY [None]
  - GASTRIC DILATATION [None]
  - GASTRIC DISORDER [None]
  - INTESTINAL OBSTRUCTION [None]
  - MALAISE [None]
  - MYOCARDIAL ISCHAEMIA [None]
  - PERITONEAL ADHESIONS [None]
  - PULMONARY CONGESTION [None]
  - PULMONARY OEDEMA [None]
  - SECRETION DISCHARGE [None]
  - SYNCOPE [None]
  - VOMITING [None]
